FAERS Safety Report 13689877 (Version 2)
Quarter: 2017Q4

REPORT INFORMATION
  Report Type: Spontaneous
  Country: US (occurrence: US)
  Receive Date: 20170626
  Receipt Date: 20171013
  Transmission Date: 20180320
  Serious: Yes (Other)
  Sender: FDA-Public Use
  Company Number: US-ABBVIE-17K-163-2012186-00

PATIENT

DRUGS (1)
  1. HUMIRA [Suspect]
     Active Substance: ADALIMUMAB
     Indication: CROHN^S DISEASE
     Route: 058
     Dates: start: 2011, end: 2017

REACTIONS (4)
  - Crohn^s disease [Not Recovered/Not Resolved]
  - Gastrointestinal fistula [Recovered/Resolved]
  - Gastrointestinal fistula [Not Recovered/Not Resolved]
  - Drug ineffective [Unknown]
